FAERS Safety Report 7408687-6 (Version None)
Quarter: 2011Q1

REPORT INFORMATION
  Report Type: 
  Country: None (occurrence: None)
  Receive Date: 20110301
  Receipt Date: 20100817
  Transmission Date: 20110831
  Serious: Yes (Hospitalization)
  Sender: FDA-Public Use
  Company Number: US-JNJFOC-20100805926

PATIENT
  Age: 4 Year
  Sex: Male
  Weight: 15.8759 kg

DRUGS (2)
  1. CHILDREN'S MOTRIN [Suspect]
     Indication: VIRAL INFECTION
     Dosage: DOSED FOR AGE AND WEIGHT WITH RECOMMENDED FREQUENCY
     Dates: start: 20100515, end: 20100515
  2. CHILDREN'S MOTRIN [Suspect]
     Indication: PYREXIA
     Dosage: DOSED FOR AGE AND WEIGHT WITH RECOMMENDED FREQUENCY
     Dates: start: 20100515, end: 20100515

REACTIONS (2)
  - HAEMATEMESIS [None]
  - PRODUCT QUALITY ISSUE [None]
